FAERS Safety Report 7952290-6 (Version None)
Quarter: 2011Q4

REPORT INFORMATION
  Report Type: 
  Country: None (occurrence: None)
  Receive Date: 20111201
  Receipt Date: 20111121
  Transmission Date: 20120403
  Serious: Yes (Hospitalization, Other)
  Sender: FDA-Public Use
  Company Number: US-BAXTER-2011BH034526

PATIENT
  Age: 88 Year
  Sex: Female
  Weight: 61 kg

DRUGS (18)
  1. FEIBA [Suspect]
     Indication: HAEMOPHILIA
     Route: 042
     Dates: start: 20111013, end: 20111028
  2. ASPIRIN [Concomitant]
     Indication: PRODUCT USED FOR UNKNOWN INDICATION
     Route: 065
  3. FEIBA [Suspect]
     Route: 042
     Dates: start: 20111013, end: 20111028
  4. MEGACE [Concomitant]
     Indication: PRODUCT USED FOR UNKNOWN INDICATION
     Route: 065
  5. HALDOL [Concomitant]
     Indication: PRODUCT USED FOR UNKNOWN INDICATION
     Route: 065
  6. FEIBA [Suspect]
     Route: 042
     Dates: start: 20111029, end: 20111031
  7. PERCOCET [Concomitant]
     Indication: PRODUCT USED FOR UNKNOWN INDICATION
     Route: 065
  8. ZOCOR [Concomitant]
     Indication: PRODUCT USED FOR UNKNOWN INDICATION
     Route: 065
  9. FEIBA [Suspect]
     Indication: HAEMORRHAGE
     Route: 042
     Dates: start: 20111013, end: 20111028
  10. FEIBA [Suspect]
     Route: 042
     Dates: start: 20111013, end: 20111028
  11. FEIBA [Suspect]
     Route: 042
     Dates: start: 20111029, end: 20111031
  12. FEIBA [Suspect]
     Route: 042
     Dates: start: 20111013, end: 20111028
  13. FEIBA [Suspect]
     Route: 042
     Dates: start: 20111029, end: 20111031
  14. INSULIN [Concomitant]
     Indication: DIABETES MELLITUS
     Route: 065
  15. FEIBA [Suspect]
     Route: 042
     Dates: start: 20111013, end: 20111028
  16. FEIBA [Suspect]
     Route: 042
     Dates: start: 20111029, end: 20111031
  17. FEIBA [Suspect]
     Route: 042
     Dates: start: 20111029, end: 20111031
  18. FEIBA [Suspect]
     Route: 042
     Dates: start: 20111029, end: 20111031

REACTIONS (1)
  - DRUG EFFECT DECREASED [None]
